FAERS Safety Report 20090499 (Version 1)
Quarter: 2021Q4

REPORT INFORMATION
  Report Type: Spontaneous
  Country: US (occurrence: None)
  Receive Date: 20211118
  Receipt Date: 20211118
  Transmission Date: 20220303
  Serious: Yes (Death)
  Sender: FDA-Public Use
  Company Number: None

PATIENT
  Age: 76 Year
  Sex: Male

DRUGS (14)
  1. ARANESP [Suspect]
     Active Substance: DARBEPOETIN ALFA
     Indication: Chronic kidney disease
     Dosage: FREQUENCY : WEEKLY;?
     Route: 058
     Dates: start: 20210903, end: 20211010
  2. AMIODARONE [Concomitant]
     Active Substance: AMIODARONE
  3. ASPIRIN [Concomitant]
  4. COD-LIVER [Concomitant]
  5. CYTRA 2 SOL-D3-1000 [Concomitant]
  6. FISH OIL FOLIC ACID [Concomitant]
  7. BRILINTA [Concomitant]
  8. HYDRALAZINE-ISOSORB [Concomitant]
  9. DIN-METOPROL [Concomitant]
  10. SUC-NOVOLOG SODIUM [Concomitant]
  11. BICAR-TORSEMIDE [Concomitant]
  12. HERBALS\TURMERIC [Concomitant]
     Active Substance: HERBALS\TURMERIC
  13. VELTASSA [Concomitant]
  14. VITAMIN C [Concomitant]

REACTIONS (1)
  - Death [None]

NARRATIVE: CASE EVENT DATE: 20211010
